FAERS Safety Report 23937576 (Version 1)
Quarter: 2024Q2

REPORT INFORMATION
  Report Type: Spontaneous
  Country: NL (occurrence: NL)
  Receive Date: 20240604
  Receipt Date: 20240604
  Transmission Date: 20240716
  Serious: Yes (Other)
  Sender: FDA-Public Use
  Company Number: NL-LRB-00954932

PATIENT
  Age: 79 Year
  Sex: Male
  Weight: 70 kg

DRUGS (2)
  1. SERTRALINE [Suspect]
     Active Substance: SERTRALINE HYDROCHLORIDE
     Indication: Claustrophobia
     Dosage: 1 PIECE ONCE A DAY
     Route: 065
     Dates: start: 19830727
  2. TETRABENAZINE [Concomitant]
     Active Substance: TETRABENAZINE
     Indication: Product used for unknown indication
     Dosage: UNKNOWN
     Route: 065

REACTIONS (1)
  - Tardive dyskinesia [Not Recovered/Not Resolved]
